FAERS Safety Report 7375709-0 (Version None)
Quarter: 2011Q1

REPORT INFORMATION
  Report Type: 
  Country: None (occurrence: None)
  Receive Date: 20110325
  Receipt Date: 20110322
  Transmission Date: 20110831
  Serious: Yes (Other)
  Sender: FDA-Public Use
  Company Number: BR-PFIZER INC-2011063139

PATIENT
  Age: 45 Year
  Sex: Male

DRUGS (10)
  1. PREDNISONE [Concomitant]
     Dosage: UNK
  2. FOLIC ACID [Concomitant]
     Dosage: UNK
  3. PROPRANOLOL [Concomitant]
  4. RANITIDINE [Concomitant]
  5. LONITEN [Suspect]
     Indication: HYPERTENSION
     Dosage: 10 MG, 3X/DAY
     Route: 048
  6. ENALAPRIL [Concomitant]
  7. ATENOLOL [Concomitant]
     Dosage: UNK
  8. METHYLDOPA [Concomitant]
     Dosage: UNK
  9. VITAMIN B COMPLEX CAP [Concomitant]
     Dosage: UNK
  10. AMLODIPINE [Concomitant]
     Dosage: UNK

REACTIONS (1)
  - HAEMODIALYSIS [None]
